FAERS Safety Report 6028215-X (Version None)
Quarter: 2009Q1

REPORT INFORMATION
  Report Type: 
  Country: None (occurrence: None)
  Receive Date: 20090106
  Receipt Date: 20080911
  Transmission Date: 20090719
  Serious: No
  Sender: FDA-Public Use
  Company Number: US-BAYER-200833477NA

PATIENT
  Sex: Male

DRUGS (2)
  1. CAMPATH [Suspect]
     Indication: DRUG USE FOR UNKNOWN INDICATION
  2. PREMEDICATIONS (UNCODEABLE ^UNKNOWN MANUFACTURER^) [Concomitant]
     Indication: PREMEDICATION

REACTIONS (1)
  - DIARRHOEA [None]
